FAERS Safety Report 18866038 (Version 14)
Quarter: 2025Q1

REPORT INFORMATION
  Report Type: Spontaneous
  Country: US (occurrence: US)
  Receive Date: 20210208
  Receipt Date: 20250212
  Transmission Date: 20250409
  Serious: Yes (Hospitalization, Other)
  Sender: PFIZER
  Company Number: US-PFIZER INC-2021116395

PATIENT
  Age: 74 Year
  Sex: Female

DRUGS (11)
  1. XELJANZ [Suspect]
     Active Substance: TOFACITINIB CITRATE
     Indication: Rheumatoid arthritis
     Dosage: 5 MG, 2X/DAY
     Route: 048
  2. XELJANZ [Suspect]
     Active Substance: TOFACITINIB CITRATE
     Dosage: 5 MG, 1X/DAY
     Route: 048
  3. ALLOPURINOL [Concomitant]
     Active Substance: ALLOPURINOL
  4. ALPRAZOLAM [Concomitant]
     Active Substance: ALPRAZOLAM
  5. BUSPIRONE [Concomitant]
     Active Substance: BUSPIRONE HYDROCHLORIDE
  6. ELIQUIS [Concomitant]
     Active Substance: APIXABAN
  7. METOPROLOL [Concomitant]
     Active Substance: METOPROLOL
  8. MOMETASONE [Concomitant]
     Active Substance: MOMETASONE
  9. OZEMPIC [Concomitant]
     Active Substance: SEMAGLUTIDE
  10. PREDNISONE [Concomitant]
     Active Substance: PREDNISONE
  11. VENLAFAXINE [Concomitant]
     Active Substance: VENLAFAXINE HYDROCHLORIDE

REACTIONS (12)
  - Cardiac failure congestive [Not Recovered/Not Resolved]
  - Neuropathy peripheral [Unknown]
  - Diabetes mellitus [Unknown]
  - Toe amputation [Unknown]
  - Cardiac operation [Unknown]
  - Condition aggravated [Unknown]
  - Spinal disorder [Unknown]
  - Joint range of motion decreased [Unknown]
  - Arthralgia [Not Recovered/Not Resolved]
  - Depressed mood [Unknown]
  - Product dispensing error [Unknown]
  - Off label use [Unknown]

NARRATIVE: CASE EVENT DATE: 20230131
